FAERS Safety Report 12261803 (Version 1)
Quarter: 2016Q2

REPORT INFORMATION
  Report Type: Spontaneous
  Country: US (occurrence: US)
  Receive Date: 20160413
  Receipt Date: 20160413
  Transmission Date: 20160815
  Serious: No
  Sender: FDA-Public Use
  Company Number: US-ASTRAZENECA-2016SE36465

PATIENT
  Sex: Male

DRUGS (3)
  1. BRILINTA [Suspect]
     Active Substance: TICAGRELOR
     Indication: STENT PLACEMENT
     Route: 048
     Dates: start: 201512
  2. INJECTABLE INSULIN [Concomitant]
  3. GLEEVEC [Concomitant]
     Active Substance: IMATINIB MESYLATE
     Indication: NEOPLASM MALIGNANT

REACTIONS (2)
  - Fatigue [Unknown]
  - Dyspnoea [Not Recovered/Not Resolved]
